FAERS Safety Report 10423256 (Version 1)
Quarter: 2014Q3

REPORT INFORMATION
  Report Type: Spontaneous
  Country: FR (occurrence: FR)
  Receive Date: 20140902
  Receipt Date: 20140902
  Transmission Date: 20150326
  Serious: Yes (Other)
  Sender: FDA-Public Use
  Company Number: FR-ROCHE-1455405

PATIENT
  Age: 58 Year
  Sex: Female

DRUGS (10)
  1. NOVONORM [Concomitant]
     Active Substance: REPAGLINIDE
     Route: 065
  2. APROVEL [Concomitant]
     Active Substance: IRBESARTAN
     Route: 065
  3. APRANAX [Suspect]
     Active Substance: NAPROXEN
     Indication: CERVICOBRACHIAL SYNDROME
     Route: 065
     Dates: start: 20140722, end: 20140728
  4. ICATIBANT [Suspect]
     Active Substance: ICATIBANT ACETATE
     Indication: PRODUCT USED FOR UNKNOWN INDICATION
     Dosage: 30MG/3ML
     Route: 065
     Dates: start: 20140729
  5. MIOREL (FRANCE) [Suspect]
     Active Substance: METHOCARBAMOL
     Indication: CERVICOBRACHIAL SYNDROME
     Route: 065
     Dates: start: 20140722, end: 20140728
  6. VICTOZA [Concomitant]
     Active Substance: LIRAGLUTIDE
     Route: 065
  7. TAHOR [Concomitant]
     Active Substance: ATORVASTATIN CALCIUM
     Route: 065
  8. POLARAMINE [Suspect]
     Active Substance: DEXCHLORPHENIRAMINE MALEATE
     Indication: PRODUCT USED FOR UNKNOWN INDICATION
     Route: 042
     Dates: start: 20140728, end: 20140731
  9. GLUCOPHAGE [Concomitant]
     Active Substance: METFORMIN HYDROCHLORIDE
     Route: 065
  10. LYRICA [Concomitant]
     Active Substance: PREGABALIN
     Route: 065

REACTIONS (1)
  - Thrombocytopenia [Recovered/Resolved]

NARRATIVE: CASE EVENT DATE: 201408
